FAERS Safety Report 8580157-1 (Version None)
Quarter: 2012Q3

REPORT INFORMATION
  Report Type: 
  Country: None (occurrence: None)
  Receive Date: 20120808
  Receipt Date: 20110110
  Transmission Date: 20120928
  Serious: Yes (Death)
  Sender: FDA-Public Use
  Company Number: ES-GILEAD-2011-0035072

PATIENT
  Age: 44 Year
  Sex: Female

DRUGS (5)
  1. VIREAD [Suspect]
     Indication: HIV INFECTION
  2. EFAVIRENZ [Suspect]
     Indication: HIV INFECTION
  3. EMTRIVA [Suspect]
     Indication: HIV INFECTION
  4. METHYLPREDNISOLONE [Concomitant]
     Route: 042
  5. PREDNISONE TAB [Concomitant]
     Route: 048

REACTIONS (1)
  - IMMUNE RECONSTITUTION SYNDROME [None]
